FAERS Safety Report 5975641-0 (Version None)
Quarter: 2008Q4

REPORT INFORMATION
  Report Type: 
  Country: None (occurrence: None)
  Receive Date: 20081128
  Receipt Date: 20081117
  Transmission Date: 20090506
  Serious: Yes (Hospitalization)
  Sender: FDA-Public Use
  Company Number: US025061

PATIENT
  Age: 14 Year
  Sex: Female

DRUGS (4)
  1. PROVIGIL [Suspect]
     Dosage: 200 MG ORAL
     Route: 048
  2. LEXAPRO [Suspect]
     Dosage: 10 MG
  3. DEPAKOTE [Concomitant]
  4. AMITRIPTYLINE HCL [Concomitant]

REACTIONS (11)
  - ANXIETY [None]
  - CLONUS [None]
  - DELIRIUM [None]
  - DIARRHOEA [None]
  - DRY MOUTH [None]
  - HYPERHIDROSIS [None]
  - HYPERVIGILANCE [None]
  - MYDRIASIS [None]
  - SLEEP DISORDER [None]
  - SUICIDE ATTEMPT [None]
  - TACHYCARDIA [None]
